FAERS Safety Report 12555264 (Version 2)
Quarter: 2016Q3

REPORT INFORMATION
  Report Type: Spontaneous
  Country: BE (occurrence: BE)
  Receive Date: 20160714
  Receipt Date: 20160905
  Transmission Date: 20161109
  Serious: Yes (Other)
  Sender: FDA-Public Use
  Company Number: BE-JNJFOC-20160709860

PATIENT
  Age: 73 Year
  Sex: Male
  Weight: 95 kg

DRUGS (7)
  1. CORDARONE [Concomitant]
     Active Substance: AMIODARONE HYDROCHLORIDE
     Route: 065
  2. SINTROM [Concomitant]
     Active Substance: ACENOCOUMAROL
     Route: 065
  3. APROVEL [Concomitant]
     Active Substance: IRBESARTAN
     Route: 065
  4. SILODOSIN [Concomitant]
     Active Substance: SILODOSIN
     Route: 065
  5. AMLOR [Concomitant]
     Active Substance: AMLODIPINE BESYLATE
     Route: 065
  6. XARELTO [Suspect]
     Active Substance: RIVAROXABAN
     Indication: ATRIAL FIBRILLATION
     Route: 048
     Dates: start: 20150417, end: 20150520
  7. XARELTO [Suspect]
     Active Substance: RIVAROXABAN
     Indication: CEREBROVASCULAR ACCIDENT PROPHYLAXIS
     Route: 048
     Dates: start: 20150417, end: 20150520

REACTIONS (2)
  - Pemphigoid [Recovered/Resolved]
  - Pemphigoid [Unknown]

NARRATIVE: CASE EVENT DATE: 201505
